FAERS Safety Report 15901947 (Version 1)
Quarter: 2019Q1

REPORT INFORMATION
  Report Type: Other
  Country: US (occurrence: US)
  Receive Date: 20190201
  Receipt Date: 20190201
  Transmission Date: 20190417
  Serious: Yes (Hospitalization, Other)
  Sender: FDA-Public Use
  Company Number: US-ACORDA-ACO_156868_2019

PATIENT
  Age: 56 Year
  Sex: Male
  Weight: 104.31 kg

DRUGS (2)
  1. COPAXONE [Concomitant]
     Active Substance: GLATIRAMER ACETATE
     Indication: PRODUCT USED FOR UNKNOWN INDICATION
     Dosage: UNK
     Route: 065
  2. AMPYRA [Suspect]
     Active Substance: DALFAMPRIDINE
     Indication: MULTIPLE SCLEROSIS
     Dosage: 10 MILLIGRAM, Q 12 HRS
     Route: 048

REACTIONS (4)
  - Varices oesophageal [Unknown]
  - Depression [Unknown]
  - Oesophageal carcinoma [Unknown]
  - Hepatic vein stenosis [Unknown]

NARRATIVE: CASE EVENT DATE: 201811
